FAERS Safety Report 17367124 (Version 1)
Quarter: 2020Q1

REPORT INFORMATION
  Report Type: Spontaneous
  Country: FR (occurrence: FR)
  Receive Date: 20200204
  Receipt Date: 20200204
  Transmission Date: 20200409
  Serious: Yes (Hospitalization, Other)
  Sender: FDA-Public Use
  Company Number: FR-MYLANLABS-2020M1012064

PATIENT
  Age: 59 Year
  Sex: Female
  Weight: 40 kg

DRUGS (2)
  1. ZOLPIDEM [Suspect]
     Active Substance: ZOLPIDEM TARTRATE
     Indication: PRODUCT USED FOR UNKNOWN INDICATION
     Dosage: 14 DOSAGE FORM, TOTAL
     Route: 048
     Dates: start: 20190326, end: 20190326
  2. ZOPICLONE [Suspect]
     Active Substance: ZOPICLONE
     Indication: PRODUCT USED FOR UNKNOWN INDICATION
     Dosage: 28 DOSAGE FORM, TOTAL
     Route: 048
     Dates: start: 20190326, end: 20190326

REACTIONS (2)
  - Poisoning deliberate [Unknown]
  - Coma [Recovered/Resolved]

NARRATIVE: CASE EVENT DATE: 20190326
